FAERS Safety Report 25787435 (Version 1)
Quarter: 2025Q3

REPORT INFORMATION
  Report Type: Spontaneous
  Country: GB (occurrence: GB)
  Receive Date: 20250910
  Receipt Date: 20250910
  Transmission Date: 20251020
  Serious: Yes (Other)
  Sender: Karo Pharma
  Company Number: GB-Karo Pharma-2184211

PATIENT
  Age: 38 Year
  Sex: Male

DRUGS (1)
  1. LAMISIL [Suspect]
     Active Substance: TERBINAFINE HYDROCHLORIDE
     Indication: Product used for unknown indication

REACTIONS (1)
  - Ageusia [Not Recovered/Not Resolved]
